FAERS Safety Report 21024048 (Version 2)
Quarter: 2022Q2

REPORT INFORMATION
  Report Type: Spontaneous
  Country: US (occurrence: US)
  Receive Date: 20220629
  Receipt Date: 20220630
  Transmission Date: 20220721
  Serious: No
  Sender: FDA-Public Use
  Company Number: US-JNJFOC-20220631750

PATIENT
  Age: 73 Year
  Sex: Female
  Weight: 70 kg

DRUGS (1)
  1. REMICADE [Suspect]
     Active Substance: INFLIXIMAB
     Indication: Hidradenitis
     Dosage: 4 VIALS
     Route: 041
     Dates: start: 20220608

REACTIONS (5)
  - Hidradenitis [Not Recovered/Not Resolved]
  - Neuralgia [Not Recovered/Not Resolved]
  - Off label use [Unknown]
  - Drug ineffective [Unknown]
  - Quality of life decreased [Unknown]

NARRATIVE: CASE EVENT DATE: 20220601
